FAERS Safety Report 17649841 (Version 2)
Quarter: 2020Q2

REPORT INFORMATION
  Report Type: Spontaneous
  Country: US (occurrence: US)
  Receive Date: 20200409
  Receipt Date: 20200427
  Transmission Date: 20200713
  Serious: Yes (Death, Other)
  Sender: FDA-Public Use
  Company Number: US-PFIZER INC-2020144662

PATIENT
  Age: 46 Year
  Sex: Male

DRUGS (1)
  1. LORBRENA [Suspect]
     Active Substance: LORLATINIB
     Indication: LUNG NEOPLASM MALIGNANT
     Dosage: 100 MG, 1X/DAY
     Route: 048
     Dates: start: 20200328, end: 202004

REACTIONS (3)
  - Neoplasm progression [Fatal]
  - Confusional state [Unknown]
  - Mental status changes [Unknown]

NARRATIVE: CASE EVENT DATE: 20200401
